FAERS Safety Report 13688987 (Version 1)
Quarter: 2017Q2

REPORT INFORMATION
  Report Type: Spontaneous
  Country: US (occurrence: US)
  Receive Date: 20170623
  Receipt Date: 20170623
  Transmission Date: 20170830
  Serious: No
  Sender: FDA-Public Use
  Company Number: None

PATIENT
  Age: 63 Year
  Sex: Male
  Weight: 120.17 kg

DRUGS (12)
  1. THIAMINE. [Concomitant]
     Active Substance: THIAMINE
  2. LITHIUM. [Concomitant]
     Active Substance: LITHIUM
  3. PRAZASTATIN [Concomitant]
  4. PHENELZINE 15 MG [Suspect]
     Active Substance: PHENELZINE SULFATE
     Dosage: 15 MG ONE QAM AND 3 QHS PO
     Route: 048
     Dates: start: 201612, end: 201706
  5. METOPROLOL. [Concomitant]
     Active Substance: METOPROLOL
  6. MULTIVITAMINS [Concomitant]
     Active Substance: VITAMINS
  7. ACETAMINOPHEN. [Concomitant]
     Active Substance: ACETAMINOPHEN
  8. LOSARTAN. [Concomitant]
     Active Substance: LOSARTAN
  9. PHENELZINE 15 MG TABLETS [Suspect]
     Active Substance: PHENELZINE SULFATE
     Indication: DEPRESSION
     Dosage: 15 MG TWO BID PO
     Route: 048
     Dates: start: 201404, end: 201507
  10. CLONAZEPAM. [Concomitant]
     Active Substance: CLONAZEPAM
  11. DIAZEPAM. [Concomitant]
     Active Substance: DIAZEPAM
  12. FOLATE [Concomitant]
     Active Substance: FOLATE SODIUM

REACTIONS (3)
  - Drug effect decreased [None]
  - Product substitution issue [None]
  - Sedation [None]

NARRATIVE: CASE EVENT DATE: 20170523
